FAERS Safety Report 10578170 (Version 2)
Quarter: 2014Q4

REPORT INFORMATION
  Report Type: Report from Study
  Country: US (occurrence: US)
  Receive Date: 20141112
  Receipt Date: 20141125
  Transmission Date: 20150529
  Serious: Yes (Hospitalization)
  Sender: FDA-Public Use
  Company Number: US-BIOGENIDEC-2014BI117718

PATIENT
  Age: 53 Year
  Sex: Female

DRUGS (1)
  1. TYSABRI [Suspect]
     Active Substance: NATALIZUMAB
     Indication: MULTIPLE SCLEROSIS
     Route: 042
     Dates: start: 20140528

REACTIONS (5)
  - White blood cell count increased [Unknown]
  - Viral infection [Unknown]
  - Blood sodium decreased [Recovered/Resolved]
  - Dehydration [Recovered/Resolved]
  - Blood potassium decreased [Recovered/Resolved]

NARRATIVE: CASE EVENT DATE: 20141031
